FAERS Safety Report 23959589 (Version 1)
Quarter: 2024Q2

REPORT INFORMATION
  Report Type: Report from Study
  Country: IT (occurrence: IT)
  Receive Date: 20240611
  Receipt Date: 20240611
  Transmission Date: 20240716
  Serious: Yes (Other)
  Sender: FDA-Public Use
  Company Number: None

PATIENT
  Age: 74 Year
  Sex: Female

DRUGS (2)
  1. LEVOFLOXACIN [Suspect]
     Active Substance: LEVOFLOXACIN
     Indication: Bronchiectasis
     Dosage: LEVOFLOXACINA
     Route: 048
     Dates: start: 20230822, end: 20230824
  2. METHYLPREDNISOLONE [Suspect]
     Active Substance: METHYLPREDNISOLONE
     Indication: Bronchiectasis
     Dosage: METHYLPREDNISOLONE
     Route: 048
     Dates: start: 20230822, end: 20230824

REACTIONS (3)
  - Haematoma [Recovering/Resolving]
  - Tendonitis [Recovering/Resolving]
  - Pain in extremity [Recovering/Resolving]

NARRATIVE: CASE EVENT DATE: 20230824
